FAERS Safety Report 11128591 (Version 1)
Quarter: 2015Q2

REPORT INFORMATION
  Report Type: Spontaneous
  Country: FR (occurrence: None)
  Receive Date: 20150519
  Receipt Date: 20150519
  Transmission Date: 20150821
  Serious: Yes (Hospitalization)
  Sender: FDA-Public Use
  Company Number: 8025404

PATIENT
  Age: 83 Year
  Sex: Male

DRUGS (5)
  1. FLECAINE (FLECAINIDE ACETATE) (200 MILLIGRAM, CAPSULE) (FLECAINIDE ACETATE) [Suspect]
     Active Substance: FLECAINIDE
     Indication: TACHYCARDIA
     Route: 048
  2. AMLODIPINE [Suspect]
     Active Substance: AMLODIPINE BESYLATE
     Indication: HYPERTENSION
     Route: 048
     Dates: start: 20150120, end: 20150212
  3. CRESTOR [Suspect]
     Active Substance: ROSUVASTATIN CALCIUM
     Indication: DYSLIPIDAEMIA
     Route: 048
  4. PREVISCAN (FLUINDIONE) [Suspect]
     Active Substance: FLUINDIONE
     Indication: SUPRAVENTRICULAR TACHYCARDIA
     Route: 048
  5. LEVOTHYROX (LEVOTHYROXINE SODIUM) (100 MICROGRAM, TABLET) (LEVOTHYROXINE SODIUM) [Suspect]
     Active Substance: LEVOTHYROXINE
     Indication: HYPOTHYROIDISM
     Route: 048

REACTIONS (5)
  - Thrombocytopenia [None]
  - Asthenia [None]
  - Dyspnoea [None]
  - Anaemia [None]
  - Bicytopenia [None]

NARRATIVE: CASE EVENT DATE: 20150211
